FAERS Safety Report 5100034-8 (Version None)
Quarter: 2006Q3

REPORT INFORMATION
  Report Type: 
  Country: None (occurrence: None)
  Receive Date: 20060908
  Receipt Date: 20060811
  Transmission Date: 20061208
  Serious: Yes (Hospitalization)
  Sender: FDA-Public Use
  Company Number: DE-SANOFI-SYNTHELABO-A04200600799

PATIENT
  Sex: Male
  Weight: 89.3 kg

DRUGS (5)
  1. PLAVIX [Suspect]
     Indication: CEREBROVASCULAR ACCIDENT
     Dosage: UNK
     Route: 048
     Dates: start: 20060401, end: 20060501
  2. PLAVIX [Suspect]
     Dosage: UNK
     Route: 048
     Dates: start: 20060101, end: 20060701
  3. PLAVIX [Suspect]
     Dosage: UNK
     Route: 048
     Dates: start: 20060715, end: 20060717
  4. CLEXANE [Concomitant]
     Indication: DRUG USE FOR UNKNOWN INDICATION
     Route: 058
  5. NEXIUM [Concomitant]
     Indication: REFLUX OESOPHAGITIS
     Dosage: 40 MG
     Route: 048
     Dates: start: 20060401

REACTIONS (10)
  - ANAEMIA [None]
  - BARRETT'S OESOPHAGUS [None]
  - DUODENITIS [None]
  - GASTRITIS [None]
  - HAEMATEMESIS [None]
  - HELICOBACTER PYLORI IDENTIFICATION TEST POSITIVE [None]
  - HIATUS HERNIA [None]
  - LEUKOCYTOSIS [None]
  - OESOPHAGITIS CHEMICAL [None]
  - REFLUX OESOPHAGITIS [None]
